FAERS Safety Report 7867230-8 (Version None)
Quarter: 2011Q4

REPORT INFORMATION
  Report Type: 
  Country: None (occurrence: None)
  Receive Date: 20111028
  Receipt Date: 20110927
  Transmission Date: 20120403
  Serious: Yes (Other)
  Sender: FDA-Public Use
  Company Number: RO-VIIV HEALTHCARE LIMITED-B0758422A

PATIENT
  Age: 42 Year
  Sex: Female

DRUGS (7)
  1. GANCICLOVIR [Concomitant]
     Indication: ANTIRETROVIRAL THERAPY
     Route: 065
  2. RALTEGRAVIR [Suspect]
     Indication: ANTIRETROVIRAL THERAPY
     Route: 065
  3. IMMUNE GLOBULIN INTRAVENOUS (HUMAN) [Concomitant]
  4. DARUNAVIR ETHANOLATE [Concomitant]
  5. AZATHIOPRINE [Concomitant]
  6. TRIZIVIR [Suspect]
     Indication: ANTIRETROVIRAL THERAPY
     Route: 065
     Dates: start: 20100101
  7. KALETRA [Suspect]
     Indication: ANTIRETROVIRAL THERAPY
     Route: 065
     Dates: start: 20100101

REACTIONS (14)
  - ABDOMINAL DISTENSION [None]
  - HYPERSENSITIVITY [None]
  - CYTOMEGALOVIRUS HEPATITIS [None]
  - NAUSEA [None]
  - RASH PAPULAR [None]
  - DIARRHOEA [None]
  - PYREXIA [None]
  - BONE MARROW FAILURE [None]
  - IMMUNE RECONSTITUTION SYNDROME [None]
  - HEPATOTOXICITY [None]
  - TRANSAMINASES INCREASED [None]
  - SWELLING FACE [None]
  - CHILLS [None]
  - CYTOLYTIC HEPATITIS [None]
